FAERS Safety Report 9551184 (Version 1)
Quarter: 2013Q3

REPORT INFORMATION
  Report Type: Spontaneous
  Country: US (occurrence: US)
  Receive Date: 20130925
  Receipt Date: 20130925
  Transmission Date: 20140515
  Serious: No
  Sender: FDA-Public Use
  Company Number: US-BIOGENIDEC-2013BI089712

PATIENT
  Age: 47 Year
  Sex: Female

DRUGS (1)
  1. TYSABRI [Suspect]
     Indication: MULTIPLE SCLEROSIS
     Route: 042
     Dates: start: 20130430

REACTIONS (8)
  - Stress [Not Recovered/Not Resolved]
  - Emotional disorder [Unknown]
  - Feeling of despair [Not Recovered/Not Resolved]
  - Faecal incontinence [Recovered/Resolved]
  - Gait disturbance [Recovered/Resolved]
  - Anxiety [Not Recovered/Not Resolved]
  - Hyperhidrosis [Recovered/Resolved]
  - Fatigue [Recovered/Resolved]
